FAERS Safety Report 15462305 (Version 1)
Quarter: 2018Q4

REPORT INFORMATION
  Report Type: Spontaneous
  Country: CH (occurrence: CH)
  Receive Date: 20181004
  Receipt Date: 20181004
  Transmission Date: 20190204
  Serious: Yes (Life-Threatening, Hospitalization)
  Sender: FDA-Public Use
  Company Number: CH-ASTRAZENECA-2018SF24314

PATIENT
  Age: 79 Year
  Sex: Male

DRUGS (9)
  1. SINTROM [Interacting]
     Active Substance: ACENOCOUMAROL
     Indication: ATRIAL FIBRILLATION
     Dosage: SELON INR
     Route: 048
     Dates: start: 20180524, end: 20180531
  2. CEFTRIAXONE. [Concomitant]
     Active Substance: CEFTRIAXONE
     Route: 041
  3. NEXIUM [Suspect]
     Active Substance: ESOMEPRAZOLE MAGNESIUM
     Route: 048
  4. CLEXANE [Interacting]
     Active Substance: ENOXAPARIN SODIUM
     Route: 058
     Dates: start: 20180524, end: 20180531
  5. BELOC ZOK [Concomitant]
     Active Substance: METOPROLOL SUCCINATE
     Route: 048
  6. TEMESTA (LORAZEPAM) [Concomitant]
     Active Substance: LORAZEPAM
     Route: 048
  7. LISINOPRIL. [Concomitant]
     Active Substance: LISINOPRIL
     Route: 048
  8. ASPIRIN CARDIO [Interacting]
     Active Substance: ASPIRIN
     Route: 048
  9. FERRUM HAUSMANN (FERROUS FUMARATE\IRON SUCROSE) [Concomitant]
     Active Substance: FERROUS FUMARATE\IRON SUCROSE
     Route: 048

REACTIONS (2)
  - Shock haemorrhagic [Recovered/Resolved]
  - Anticoagulation drug level above therapeutic [Recovered/Resolved]

NARRATIVE: CASE EVENT DATE: 20180531
